FAERS Safety Report 6841001-3 (Version None)
Quarter: 2010Q3

REPORT INFORMATION
  Report Type: 
  Country: None (occurrence: None)
  Receive Date: 20100714
  Receipt Date: 20070621
  Transmission Date: 20110219
  Serious: No
  Sender: FDA-Public Use
  Company Number: US-PFIZER INC-2007052551

PATIENT
  Sex: Female

DRUGS (2)
  1. CHANTIX [Suspect]
  2. IRON [Concomitant]

REACTIONS (2)
  - CONSTIPATION [None]
  - MIDDLE INSOMNIA [None]
